FAERS Safety Report 8885062 (Version 2)
Quarter: 2013Q4

REPORT INFORMATION
  Report Type: Spontaneous
  Country: US (occurrence: US)
  Receive Date: 20121102
  Receipt Date: 20131121
  Transmission Date: 20140711
  Serious: Yes (Other)
  Sender: FDA-Public Use
  Company Number: US-ACTELION-A-US2010-39227

PATIENT
  Age: 59 Year
  Sex: Female

DRUGS (19)
  1. TRACLEER [Suspect]
     Indication: PULMONARY ARTERIAL HYPERTENSION
     Dosage: 62.5 MG, BID
     Route: 048
     Dates: start: 20091229, end: 2010
  2. TRACLEER [Suspect]
     Dosage: 62.5 MG, BID
     Route: 048
     Dates: start: 2010, end: 2011
  3. TRACLEER [Suspect]
     Dosage: 125 MG, BID
     Route: 048
     Dates: start: 2010, end: 2010
  4. TRACLEER [Suspect]
     Dosage: 125 MG, BID
     Route: 048
     Dates: start: 2011
  5. REVATIO [Concomitant]
     Dosage: 20 MG, TID
  6. PRILOSEC [Concomitant]
     Dosage: 20 MG, QD
  7. VALIUM [Concomitant]
     Dosage: 20 MG, QD
  8. TYLENOL WITH CODEIN #3 [Concomitant]
     Dosage: UNK, TID PRN
  9. HYDROXYZINE [Concomitant]
     Dosage: UNK
  10. LIBRAX [Concomitant]
     Dosage: 10 MG, PRN
  11. PRAVASTATIN [Concomitant]
     Dosage: 40 MG, QD
  12. LEVOXYL [Concomitant]
     Dosage: 0.05 MG, QD
  13. LASIX [Concomitant]
     Dosage: 80 MG, QD
  14. SPIRONOLACTONE [Concomitant]
     Dosage: 50 MG, UNK
  15. GABAPENTIN [Concomitant]
     Dosage: 300 MG, BID
  16. METOCLOPRAMIDE [Concomitant]
     Dosage: 10 MG, TID
  17. IBUPROFEN [Concomitant]
     Dosage: 600 MG, PRN
  18. FLONASE [Concomitant]
     Dosage: UNK, BID
  19. COMPAZINE [Concomitant]
     Dosage: 10 MG, PRN

REACTIONS (7)
  - Hepatitis alcoholic [Recovering/Resolving]
  - Hepatic pain [Recovering/Resolving]
  - Aspartate aminotransferase increased [Recovering/Resolving]
  - Alanine aminotransferase increased [Recovering/Resolving]
  - Liver function test abnormal [Recovering/Resolving]
  - Lung disorder [Not Recovered/Not Resolved]
  - Drug ineffective [Unknown]
